FAERS Safety Report 6108404-6 (Version None)
Quarter: 2009Q1

REPORT INFORMATION
  Report Type: 
  Country: None (occurrence: None)
  Receive Date: 20090309
  Receipt Date: 20090227
  Transmission Date: 20090719
  Serious: Yes (Disabling)
  Sender: FDA-Public Use
  Company Number: PHHY2009SE02266

PATIENT
  Sex: Female

DRUGS (1)
  1. ACLASTA [Suspect]
     Indication: BACK PAIN
     Dosage: 5 MG
     Route: 051
     Dates: start: 20080625

REACTIONS (10)
  - ARTHRALGIA [None]
  - BEDRIDDEN [None]
  - ENTHESOPATHY [None]
  - MYALGIA [None]
  - PAIN [None]
  - PARAESTHESIA [None]
  - POLYARTHRITIS [None]
  - RHEUMATOID ARTHRITIS [None]
  - TOOTH DISORDER [None]
  - TOOTH LOSS [None]
